FAERS Safety Report 9430403 (Version 2)
Quarter: 2013Q3

REPORT INFORMATION
  Report Type: Spontaneous
  Country: JP (occurrence: JP)
  Receive Date: 20130730
  Receipt Date: 20130827
  Transmission Date: 20140515
  Serious: Yes (Life-Threatening, Hospitalization)
  Sender: FDA-Public Use
  Company Number: JP-GLAXOSMITHKLINE-B0899723A

PATIENT
  Age: 65 Year
  Sex: Male
  Weight: 49 kg

DRUGS (6)
  1. VALTREX [Suspect]
     Indication: HERPES ZOSTER
     Dosage: 1000MG THREE TIMES PER DAY
     Route: 048
     Dates: start: 20130527, end: 20130610
  2. LYRICA [Concomitant]
     Indication: NEURALGIA
     Dosage: 75MG TWICE PER DAY
     Route: 048
  3. TENORMIN [Concomitant]
     Indication: NEURALGIA
     Dosage: 50MG PER DAY
     Route: 048
  4. LOXONIN [Concomitant]
     Indication: NEURALGIA
     Dosage: 60MG THREE TIMES PER DAY
     Route: 048
  5. MYONAL [Concomitant]
     Indication: NEURALGIA
     Dosage: 50MG THREE TIMES PER DAY
     Route: 048
  6. GABALON [Concomitant]
     Indication: NEURALGIA
     Dosage: 5MG THREE TIMES PER DAY
     Route: 048

REACTIONS (3)
  - Altered state of consciousness [Recovering/Resolving]
  - Shock [Recovering/Resolving]
  - Overdose [Unknown]
